FAERS Safety Report 16680348 (Version 1)
Quarter: 2019Q3

REPORT INFORMATION
  Report Type: Report from Study
  Country: JP (occurrence: JP)
  Receive Date: 20190807
  Receipt Date: 20190807
  Transmission Date: 20191004
  Serious: Yes (Other)
  Sender: FDA-Public Use
  Company Number: JP-PFIZER INC-2019329790

PATIENT
  Sex: Female
  Weight: .82 kg

DRUGS (1)
  1. HYDROCORTISONE SODIUM SUCCINATE [Suspect]
     Active Substance: HYDROCORTISONE SODIUM SUCCINATE
     Indication: CIRCULATORY COLLAPSE
     Dosage: UNKNOWN (3.3-10 MG/KG, BOLUS INJECTION)
     Route: 040

REACTIONS (2)
  - Periventricular leukomalacia [Unknown]
  - Drug ineffective [Unknown]
